FAERS Safety Report 12482150 (Version 1)
Quarter: 2016Q2

REPORT INFORMATION
  Report Type: Spontaneous
  Country: FR (occurrence: FR)
  Receive Date: 20160620
  Receipt Date: 20160620
  Transmission Date: 20160815
  Serious: Yes (Hospitalization)
  Sender: FDA-Public Use
  Company Number: FR-009507513-1606FRA007896

PATIENT
  Age: 63 Year
  Sex: Male

DRUGS (15)
  1. CALCIDIA [Concomitant]
     Active Substance: CALCIUM POLYCARBOPHIL
  2. MINISINTROM [Concomitant]
     Active Substance: ACENOCOUMAROL
     Route: 048
  3. LYRICA [Concomitant]
     Active Substance: PREGABALIN
  4. LEVOTHYROX [Concomitant]
     Active Substance: LEVOTHYROXINE
  5. WELLVONE [Suspect]
     Active Substance: ATOVAQUONE
     Indication: PRODUCT USED FOR UNKNOWN INDICATION
     Dosage: UNK
     Route: 048
     Dates: start: 201605, end: 20160525
  6. CORDARONE [Concomitant]
     Active Substance: AMIODARONE HYDROCHLORIDE
  7. DIFFU-K [Concomitant]
     Active Substance: POTASSIUM CHLORIDE
  8. AMIKACIN [Suspect]
     Active Substance: AMIKACIN
     Indication: BACTERIAL SEPSIS
     Dosage: 2400MG, QD
     Route: 065
     Dates: start: 20160523, end: 20160525
  9. INEXIUM (ESOMEPRAZOLE SODIUM) [Concomitant]
     Active Substance: ESOMEPRAZOLE SODIUM
     Route: 048
  10. ZELITREX [Concomitant]
     Active Substance: VALACYCLOVIR HYDROCHLORIDE
  11. PIPERACILLIN AND TAZOBACTAM [Suspect]
     Active Substance: PIPERACILLIN SODIUM\TAZOBACTAM SODIUM
     Indication: BACTERIAL SEPSIS
     Dosage: 4 G, UNK
     Route: 065
     Dates: start: 20160523, end: 20160525
  12. LOVENOX [Concomitant]
     Active Substance: ENOXAPARIN SODIUM
  13. CUBICIN [Suspect]
     Active Substance: DAPTOMYCIN
     Indication: PRODUCT USED FOR UNKNOWN INDICATION
     Dosage: UNK
     Route: 042
     Dates: start: 20160523, end: 20160525
  14. HYDROCORTISONE. [Concomitant]
     Active Substance: HYDROCORTISONE
  15. ALPRAZOLAM. [Concomitant]
     Active Substance: ALPRAZOLAM

REACTIONS (1)
  - Tubulointerstitial nephritis [Recovering/Resolving]

NARRATIVE: CASE EVENT DATE: 20160525
